FAERS Safety Report 10210286 (Version 1)
Quarter: 2014Q2

REPORT INFORMATION
  Report Type: Spontaneous
  Country: GB (occurrence: GB)
  Receive Date: 20140602
  Receipt Date: 20140602
  Transmission Date: 20141212
  Serious: Yes (Other)
  Sender: FDA-Public Use
  Company Number: GB-SA-2014SA066651

PATIENT
  Age: 70 Year
  Sex: Male
  Weight: 96.16 kg

DRUGS (6)
  1. MULTAQ [Suspect]
     Indication: ARRHYTHMIA PROPHYLAXIS
     Route: 048
     Dates: start: 20140205, end: 20140509
  2. ATORVASTATIN [Concomitant]
  3. WARFARIN [Concomitant]
  4. LANSOPRAZOLE [Concomitant]
  5. PARACETAMOL [Concomitant]
     Indication: NASOPHARYNGITIS
     Dosage: FOR 3 DAYS, WITHIN THE RECOMMENDED DOSE OF NO MORE THAN 8 TABLETS IN 24 HOURS.
  6. BETA BLOCKING AGENTS [Concomitant]
     Indication: ATRIAL FIBRILLATION

REACTIONS (2)
  - Alanine aminotransferase increased [Recovered/Resolved]
  - Blood creatinine increased [Recovered/Resolved]
